FAERS Safety Report 10828914 (Version 1)
Quarter: 2015Q1

REPORT INFORMATION
  Report Type: Report from Study
  Country: US (occurrence: US)
  Receive Date: 20150219
  Receipt Date: 20150219
  Transmission Date: 20150721
  Serious: Yes (Other)
  Sender: FDA-Public Use
  Company Number: US-ABBVIE-14P-163-1187071-00

PATIENT
  Sex: Male

DRUGS (1)
  1. HUMIRA [Suspect]
     Active Substance: ADALIMUMAB
     Indication: PSORIASIS
     Route: 058
     Dates: start: 20130823

REACTIONS (6)
  - Skin haemorrhage [Unknown]
  - Blister [Unknown]
  - Skin atrophy [Unknown]
  - Skin ulcer [Unknown]
  - Drug ineffective [Unknown]
  - Prostatic operation [Unknown]
